FAERS Safety Report 6150446-9 (Version None)
Quarter: 2009Q2

REPORT INFORMATION
  Report Type: 
  Country: None (occurrence: None)
  Receive Date: 20090409
  Receipt Date: 20090402
  Transmission Date: 20091009
  Serious: Yes (Hospitalization)
  Sender: FDA-Public Use
  Company Number: US-B.I. PHARMACEUTICALS,INC./RIDGEFIELD-2009-BP-04121BP

PATIENT
  Sex: Male

DRUGS (7)
  1. CATAPRES-TTS-1 [Suspect]
     Indication: HYPERTENSION
     Route: 061
     Dates: start: 20070601, end: 20080601
  2. TEKTURNA [Concomitant]
     Indication: HYPERTENSION
  3. LASIX [Concomitant]
     Indication: CORONARY ARTERY DISEASE
  4. VYTORIN [Concomitant]
     Indication: BLOOD CHOLESTEROL INCREASED
  5. CALCITRIOL [Concomitant]
     Indication: RENAL FAILURE
  6. PHOSLO [Concomitant]
     Indication: RENAL FAILURE
  7. NEXIUM [Concomitant]
     Indication: GASTROOESOPHAGEAL REFLUX DISEASE

REACTIONS (3)
  - CORONARY ARTERY BYPASS [None]
  - RASH ERYTHEMATOUS [None]
  - RASH PRURITIC [None]
